FAERS Safety Report 22589052 (Version 3)
Quarter: 2023Q4

REPORT INFORMATION
  Report Type: Spontaneous
  Country: US (occurrence: US)
  Receive Date: 20230612
  Receipt Date: 20231215
  Transmission Date: 20240110
  Serious: Yes (Other)
  Sender: FDA-Public Use
  Company Number: US-AMGEN-USASP2023097703

PATIENT
  Age: 77 Year
  Sex: Female

DRUGS (2)
  1. PROLIA [Suspect]
     Active Substance: DENOSUMAB
     Indication: Osteoporosis
     Dosage: UNK
     Route: 058
     Dates: start: 202112, end: 202212
  2. PROLIA [Suspect]
     Active Substance: DENOSUMAB
     Dosage: 6 MG/ML, Q6MO
     Route: 058

REACTIONS (2)
  - Gastrointestinal stromal tumour [Recovering/Resolving]
  - Exostosis of jaw [Recovering/Resolving]
